FAERS Safety Report 9445425 (Version 1)
Quarter: 2013Q3

REPORT INFORMATION
  Report Type: Spontaneous
  Country: US (occurrence: US)
  Receive Date: 20130807
  Receipt Date: 20130807
  Transmission Date: 20140515
  Serious: Yes (Other)
  Sender: FDA-Public Use
  Company Number: US-PFIZER INC-2013225091

PATIENT
  Sex: Female
  Weight: 68.03 kg

DRUGS (1)
  1. ESTRING [Suspect]
     Dosage: UNK

REACTIONS (3)
  - Urinary tract infection [Recovering/Resolving]
  - Vulvovaginal candidiasis [Unknown]
  - Vaginal infection [Recovering/Resolving]
